FAERS Safety Report 4423522-6 (Version None)
Quarter: 2004Q3

REPORT INFORMATION
  Report Type: 
  Country: None (occurrence: None)
  Receive Date: 20040805
  Receipt Date: 20040802
  Transmission Date: 20050211
  Serious: Yes (Other)
  Sender: FDA-Public Use
  Company Number: 200412361GDS

PATIENT
  Age: 11 Year
  Sex: Male

DRUGS (1)
  1. ASPIRIN [Suspect]
     Indication: RHEUMATOID ARTHRITIS
     Dosage: 1200 MG, TOTAL DAILY

REACTIONS (2)
  - LIVER DISORDER [None]
  - MEDICATION ERROR [None]
